FAERS Safety Report 9729902 (Version 1)
Quarter: 2013Q4

REPORT INFORMATION
  Report Type: Spontaneous
  Country: FR (occurrence: None)
  Receive Date: 20131203
  Receipt Date: 20131203
  Transmission Date: 20140711
  Serious: Yes (Hospitalization)
  Sender: FDA-Public Use
  Company Number: ABR_01282_2013

PATIENT
  Age: 64 Year
  Sex: Male

DRUGS (3)
  1. ERYTHROCINE [Suspect]
     Indication: PRODUCT USED FOR UNKNOWN INDICATION
     Route: 042
     Dates: start: 20130915, end: 20130918
  2. CARDARONE [Suspect]
     Indication: ATRIAL FIBRILLATION
     Dates: start: 20130916, end: 20130923
  3. CEFOTAXIME SODIUM [Suspect]
     Indication: SEPTIC SHOCK
     Dosage: (DF INTRAVENOUS (NOT OTHERWISE SPECIFIED)
     Dates: start: 20130915, end: 20130928

REACTIONS (1)
  - Acute generalised exanthematous pustulosis [None]
